FAERS Safety Report 4550686-6 (Version None)
Quarter: 2004Q4

REPORT INFORMATION
  Report Type: 
  Country: None (occurrence: None)
  Receive Date: 20041217
  Receipt Date: 20041026
  Transmission Date: 20050328
  Serious: No
  Sender: FDA-Public Use
  Company Number: 2004-BP-10868BP

PATIENT
  Age: 77 Year
  Sex: Female

DRUGS (5)
  1. SPIRIVA [Suspect]
     Indication: CHRONIC OBSTRUCTIVE AIRWAYS DISEASE
     Dosage: 18 MCG (18 MCG) IH
     Route: 055
     Dates: start: 20040801
  2. TAMOXIFEN(TAMOXIFEN) [Suspect]
     Dosage: 60 MG
  3. ZOCOR [Suspect]
  4. INSULIN [Concomitant]
  5. DEMEDEX [Concomitant]

REACTIONS (1)
  - MUSCLE CRAMP [None]
